FAERS Safety Report 4649658-2 (Version None)
Quarter: 2005Q2

REPORT INFORMATION
  Report Type: 
  Country: None (occurrence: None)
  Receive Date: 20050502
  Receipt Date: 20030411
  Transmission Date: 20051028
  Serious: Yes (Hospitalization, Other)
  Sender: FDA-Public Use
  Company Number: US-BRISTOL-MYERS SQUIBB COMPANY-12240834

PATIENT
  Age: 65 Year
  Sex: Male

DRUGS (12)
  1. CISPLATIN [Suspect]
     Indication: SQUAMOUS CELL CARCINOMA
     Dates: start: 20000516, end: 20000516
  2. CETUXIMAB [Suspect]
     Indication: SQUAMOUS CELL CARCINOMA
     Dosage: LAST ADMINISTERED:  30-MAY-2000
     Route: 042
     Dates: start: 20000516, end: 20000516
  3. RADIATION THERAPY [Suspect]
     Indication: SQUAMOUS CELL CARCINOMA
     Dates: start: 20000523, end: 20000523
  4. GRANISETRON [Concomitant]
  5. DOCUSATE [Concomitant]
  6. OXYCODONE [Concomitant]
  7. REGLAN [Concomitant]
  8. ZYPREXA [Concomitant]
  9. PAXIL [Concomitant]
  10. AMBIEN [Concomitant]
  11. MYCELEX [Concomitant]
  12. ROBITUSSIN [Concomitant]
     Dates: start: 20000517, end: 20000517

REACTIONS (5)
  - DEHYDRATION [None]
  - DEPRESSION [None]
  - FAILURE TO THRIVE [None]
  - HYPERGLYCAEMIA [None]
  - NAUSEA [None]
